FAERS Safety Report 7958210-2 (Version None)
Quarter: 2011Q4

REPORT INFORMATION
  Report Type: 
  Country: None (occurrence: None)
  Receive Date: 20111205
  Receipt Date: 20111130
  Transmission Date: 20120403
  Serious: Yes (Other)
  Sender: FDA-Public Use
  Company Number: US-PFIZER INC-2011292721

PATIENT
  Sex: Female
  Weight: 70.3 kg

DRUGS (5)
  1. ZOLOFT [Concomitant]
     Dosage: 100 MG, 2X/DAY
  2. LYRICA [Suspect]
     Indication: FIBROMYALGIA
     Dosage: 25 MG, DAILY
     Route: 048
     Dates: start: 20110901, end: 20110101
  3. CRESTOR [Concomitant]
     Dosage: UNK
     Route: 048
  4. MAGNESIUM OXIDE [Concomitant]
     Indication: RENAL DISORDER
     Dosage: UNK,  2X/DAY
  5. VITAMIN D [Concomitant]
     Indication: RENAL DISORDER
     Dosage: UNK, 3X/DAY

REACTIONS (5)
  - FLUID RETENTION [None]
  - CARDIAC DISORDER [None]
  - PALPITATIONS [None]
  - SWELLING [None]
  - RENAL DISORDER [None]
